FAERS Safety Report 9238885 (Version 4)
Quarter: 2013Q3

REPORT INFORMATION
  Report Type: Report from Study
  Country: CH (occurrence: CH)
  Receive Date: 20130418
  Receipt Date: 20130905
  Transmission Date: 20140515
  Serious: Yes (Hospitalization)
  Sender: FDA-Public Use
  Company Number: CH-CELGENEUS-151-C4047-13013139

PATIENT
  Age: 68 Year
  Sex: Female
  Weight: 65 kg

DRUGS (17)
  1. CC-4047 [Suspect]
     Indication: PLASMA CELL MYELOMA
     Dosage: 4 MILLIGRAM
     Route: 048
     Dates: start: 20130108, end: 20130118
  2. CC-4047 [Suspect]
     Dosage: 4 MILLIGRAM
     Route: 048
     Dates: end: 20130201
  3. CC-4047 [Suspect]
     Dosage: 4 MILLIGRAM
     Route: 048
     Dates: start: 20130129, end: 20130208
  4. CC-4047 [Suspect]
     Dosage: 3 MILLIGRAM
     Route: 048
     Dates: start: 20130223
  5. ASPIRINE [Concomitant]
     Indication: THROMBOSIS PROPHYLAXIS
     Dosage: 100 MILLIGRAM
     Route: 048
     Dates: start: 20130109
  6. CYMBALTA [Concomitant]
     Indication: ANXIETY
     Dosage: 30 MILLIGRAM
     Route: 048
     Dates: start: 20120912
  7. OMEPRAZOLE [Concomitant]
     Indication: GASTROOESOPHAGEAL REFLUX PROPHYLAXIS
     Dosage: 40 MILLIGRAM
     Route: 048
     Dates: start: 2011
  8. CALCIMAGON [Concomitant]
     Indication: SUPPLEMENTATION THERAPY
     Dosage: 500 MILLIGRAM
     Route: 048
     Dates: start: 2010
  9. LEXOTANIL [Concomitant]
     Indication: ANXIETY
     Dosage: 3 MILLIGRAM
     Route: 048
     Dates: start: 20130103, end: 20130306
  10. LEXOTANIL [Concomitant]
     Route: 048
     Dates: start: 20130307
  11. PAROXETIN [Concomitant]
     Indication: ANXIETY
     Dosage: 20 MILLIGRAM
     Route: 048
     Dates: start: 20121205, end: 20130221
  12. VALTREX [Concomitant]
     Indication: PROPHYLAXIS
     Route: 048
     Dates: start: 2008, end: 20130221
  13. SINGULAR [Concomitant]
     Indication: COUGH
     Route: 048
     Dates: start: 20120424
  14. CODEIN [Concomitant]
     Indication: COUGH
     Route: 048
     Dates: start: 20120417
  15. SYMBICORT [Concomitant]
     Indication: COUGH
     Dosage: AS NEEDED
     Route: 002
     Dates: start: 20120518
  16. ZOLOFT [Concomitant]
     Indication: ANXIETY
     Dosage: 50 MILLIGRAM
     Route: 048
     Dates: start: 20130307, end: 20130321
  17. CEFTRIAXONE [Concomitant]
     Indication: ENTEROCOLITIS INFECTIOUS
     Dosage: 4 GRAM
     Route: 041
     Dates: start: 20130118, end: 20130121

REACTIONS (3)
  - Enterocolitis infectious [Recovered/Resolved]
  - Abdominal pain [Recovered/Resolved]
  - Fatigue [Recovered/Resolved]
